FAERS Safety Report 12615407 (Version 2)
Quarter: 2016Q4

REPORT INFORMATION
  Report Type: Spontaneous
  Country: US (occurrence: US)
  Receive Date: 20160802
  Receipt Date: 20161013
  Transmission Date: 20170207
  Serious: Yes (Other)
  Sender: FDA-Public Use
  Company Number: US-PFIZER INC-2016370064

PATIENT
  Age: 73 Year
  Sex: Female

DRUGS (4)
  1. CELEBREX [Suspect]
     Active Substance: CELECOXIB
     Indication: ROTATOR CUFF SYNDROME
  2. AMITRIPTYLINE [Concomitant]
     Active Substance: AMITRIPTYLINE
     Dosage: 125 MG, UNK
     Dates: start: 1995
  3. CELEBREX [Suspect]
     Active Substance: CELECOXIB
     Indication: FIBROMYALGIA
  4. CELEBREX [Suspect]
     Active Substance: CELECOXIB
     Indication: TEMPOROMANDIBULAR JOINT SYNDROME
     Dosage: 200 MG, AS NEEDED
     Dates: start: 2005

REACTIONS (1)
  - Obstruction [Unknown]
